FAERS Safety Report 18550587 (Version 2)
Quarter: 2020Q4

REPORT INFORMATION
  Report Type: Spontaneous
  Country: PL (occurrence: PL)
  Receive Date: 20201126
  Receipt Date: 20201207
  Transmission Date: 20210114
  Serious: Yes (Hospitalization, Other)
  Sender: FDA-Public Use
  Company Number: PL-AMGEN-POLSP2020188275

PATIENT
  Age: 45 Year
  Sex: Female

DRUGS (5)
  1. OXALIPLATIN. [Concomitant]
     Active Substance: OXALIPLATIN
     Indication: COLON CANCER METASTATIC
     Dosage: UNK
     Dates: start: 20191001
  2. 5-FU [FLUOROURACIL] [Concomitant]
     Active Substance: FLUOROURACIL
     Indication: COLON CANCER METASTATIC
     Dosage: UNK
     Dates: start: 20191001
  3. FOLINIC ACID [Concomitant]
     Active Substance: LEUCOVORIN
     Indication: COLON CANCER METASTATIC
     Dosage: UNK
     Dates: start: 20191001
  4. VECTIBIX [Suspect]
     Active Substance: PANITUMUMAB
     Indication: COLON CANCER METASTATIC
     Dosage: 372 MILLIGRAM
     Route: 065
     Dates: start: 20191001
  5. VECTIBIX [Suspect]
     Active Substance: PANITUMUMAB
     Dosage: 372 MILLIGRAM
     Route: 065

REACTIONS (2)
  - Hepatitis viral [Unknown]
  - Ovarian cyst [Unknown]

NARRATIVE: CASE EVENT DATE: 2019
